FAERS Safety Report 11855986 (Version 1)
Quarter: 2015Q4

REPORT INFORMATION
  Report Type: Spontaneous
  Country: US (occurrence: None)
  Receive Date: 20151218
  Receipt Date: 20151218
  Transmission Date: 20160305
  Serious: Yes (Disabling, Other)
  Sender: FDA-Public Use
  Company Number: None

PATIENT
  Age: 53 Year
  Sex: Male
  Weight: 54.43 kg

DRUGS (1)
  1. ALBUTEROL 90 MCG GLAXOSMITHKLINE [Suspect]
     Active Substance: ALBUTEROL
     Indication: BRONCHITIS
     Dates: start: 20151123, end: 20151210

REACTIONS (2)
  - Tongue haemorrhage [None]
  - Tongue discolouration [None]

NARRATIVE: CASE EVENT DATE: 20151210
